FAERS Safety Report 17302710 (Version 1)
Quarter: 2020Q1

REPORT INFORMATION
  Report Type: Spontaneous
  Country: US (occurrence: US)
  Receive Date: 20200122
  Receipt Date: 20200122
  Transmission Date: 20200409
  Serious: No
  Sender: FDA-Public Use
  Company Number: US-ASTRAZENECA-2019SF88524

PATIENT
  Sex: Male

DRUGS (1)
  1. SYMBICORT [Suspect]
     Active Substance: BUDESONIDE\FORMOTEROL FUMARATE DIHYDRATE
     Dosage: 160/4.5 MCG 2 PUFFS TWICE DAILY
     Route: 055

REACTIONS (7)
  - Dyspnoea [Unknown]
  - Wrong technique in device usage process [Unknown]
  - Anxiety [Unknown]
  - Nervousness [Unknown]
  - Product dose omission [Unknown]
  - Product use issue [Unknown]
  - Device issue [Unknown]
